FAERS Safety Report 12625711 (Version 1)
Quarter: 2016Q3

REPORT INFORMATION
  Report Type: Spontaneous
  Country: US (occurrence: None)
  Receive Date: 20160804
  Receipt Date: 20160804
  Transmission Date: 20161109
  Serious: Yes (Other)
  Sender: FDA-Public Use
  Company Number: None

PATIENT
  Sex: Male
  Weight: 23.59 kg

DRUGS (2)
  1. GUANFACINE HCL ER [Suspect]
     Active Substance: GUANFACINE HYDROCHLORIDE
     Indication: AUTISM SPECTRUM DISORDER
     Dosage: INTUNIV ER 2MG @8AM DAILY PO
     Route: 048
     Dates: start: 2014, end: 201604
  2. GUANFACINE HCL ER 1MG [Suspect]
     Active Substance: GUANFACINE
     Indication: ATTENTION DEFICIT/HYPERACTIVITY DISORDER
     Dosage: INTUNIV ER 1MG @ 1430 DAILY PO
     Route: 048
     Dates: start: 2014, end: 201604

REACTIONS (4)
  - Condition aggravated [None]
  - Malabsorption [None]
  - Autism [None]
  - Product substitution issue [None]
